FAERS Safety Report 25883842 (Version 3)
Quarter: 2025Q4

REPORT INFORMATION
  Report Type: Spontaneous
  Country: US (occurrence: US)
  Receive Date: 20251006
  Receipt Date: 20251020
  Transmission Date: 20260118
  Serious: No
  Sender: ABBVIE
  Company Number: US-ABBVIE-6481611

PATIENT
  Age: 74 Year
  Sex: Female
  Weight: 77.11 kg

DRUGS (7)
  1. REFRESH RELIEVA [Suspect]
     Active Substance: CARBOXYMETHYLCELLULOSE SODIUM\GLYCERIN
     Indication: Dry eye
     Dosage: 4 DROP?PRESERVATIVE FREE
     Route: 047
     Dates: start: 20250924, end: 20250927
  2. VITAMIN D3 [Concomitant]
     Active Substance: CHOLECALCIFEROL
     Indication: Product used for unknown indication
  3. REFRESH RELIEVA PF [Suspect]
     Active Substance: CARBOXYMETHYLCELLULOSE SODIUM\GLYCERIN
     Indication: Dry eye
     Route: 047
  4. DOXYCYCLINE [Concomitant]
     Active Substance: DOXYCYCLINE
     Indication: Alopecia
  5. Focus select [Concomitant]
     Indication: Eye disorder
  6. CARBOXYMETHYLCELLULOSE SODIUM\GLYCERIN [Suspect]
     Active Substance: CARBOXYMETHYLCELLULOSE SODIUM\GLYCERIN
     Indication: Dry eye
     Route: 047
  7. THERATEARS [Concomitant]
     Active Substance: CARBOXYMETHYLCELLULOSE SODIUM
     Indication: Eye disorder

REACTIONS (6)
  - Multiple use of single-use product [Unknown]
  - Dry eye [Not Recovered/Not Resolved]
  - Product storage error [Unknown]
  - Drug ineffective [Unknown]
  - Product container issue [Unknown]
  - Ocular discomfort [Unknown]

NARRATIVE: CASE EVENT DATE: 20250927
